FAERS Safety Report 10503882 (Version 1)
Quarter: 2014Q4

REPORT INFORMATION
  Report Type: Spontaneous
  Country: BR (occurrence: BR)
  Receive Date: 20141008
  Receipt Date: 20141008
  Transmission Date: 20150528
  Serious: Yes (Other)
  Sender: FDA-Public Use
  Company Number: BR-SA-2014SA135298

PATIENT
  Sex: Male
  Weight: 72 kg

DRUGS (3)
  1. LANTUS SOLOSTAR [Suspect]
     Active Substance: INSULIN GLARGINE
     Indication: TYPE 2 DIABETES MELLITUS
     Dosage: DOSE: 20 IU UNITS DAILY IN THE MORNING
     Route: 065
     Dates: start: 201311
  2. SOLOSTAR [Concomitant]
     Active Substance: DEVICE
     Dates: start: 201311
  3. ARADOIS [Concomitant]
     Active Substance: LOSARTAN POTASSIUM
     Indication: CARDIAC DISORDER

REACTIONS (4)
  - Headache [Recovering/Resolving]
  - Glomerular filtration rate decreased [Unknown]
  - Hypoglycaemia [Recovering/Resolving]
  - Dizziness [Recovering/Resolving]
